FAERS Safety Report 5315703-4 (Version None)
Quarter: 2007Q2

REPORT INFORMATION
  Report Type: 
  Country: None (occurrence: None)
  Receive Date: 20070430
  Receipt Date: 20070430
  Transmission Date: 20071010
  Serious: No
  Sender: FDA-Public Use
  Company Number: None

PATIENT
  Age: 59 Year
  Sex: Female
  Weight: 64.4108 kg

DRUGS (2)
  1. EPOGEN [Suspect]
     Indication: RED BLOOD CELL COUNT DECREASED
     Dosage: 100U  2XS WEEKLY  IM
     Route: 030
     Dates: start: 20070107, end: 20070427
  2. RIBAVIRIN [Suspect]
     Dosage: 200MG  7DAYS  BUCCAL
     Route: 002
     Dates: start: 20070107, end: 20070427

REACTIONS (6)
  - ABDOMINAL PAIN UPPER [None]
  - ABNORMAL FAECES [None]
  - ASTHENIA [None]
  - FAECES DISCOLOURED [None]
  - ILL-DEFINED DISORDER [None]
  - PHARMACEUTICAL PRODUCT COMPLAINT [None]
